FAERS Safety Report 21718254 (Version 2)
Quarter: 2022Q4

REPORT INFORMATION
  Report Type: Spontaneous
  Country: CN (occurrence: CN)
  Receive Date: 20221212
  Receipt Date: 20221228
  Transmission Date: 20230113
  Serious: Yes (Other)
  Sender: FDA-Public Use
  Company Number: CN-TAKEDA-2022TUS094339

PATIENT
  Age: 40 Year
  Sex: Female

DRUGS (4)
  1. ADCETRIS [Suspect]
     Active Substance: BRENTUXIMAB VEDOTIN
     Indication: Cutaneous T-cell lymphoma
     Dosage: 100 MILLIGRAM
     Route: 065
     Dates: start: 202109
  2. DEXAMETHASONE [Suspect]
     Active Substance: DEXAMETHASONE
     Indication: Cutaneous T-cell lymphoma
     Dosage: 40 MILLIGRAM
     Route: 065
     Dates: start: 202109
  3. GEMCITABINE HYDROCHLORIDE [Suspect]
     Active Substance: GEMCITABINE HYDROCHLORIDE
     Indication: Cutaneous T-cell lymphoma
     Dosage: 1.7 GRAM
     Route: 065
     Dates: start: 202109
  4. CISPLATIN [Suspect]
     Active Substance: CISPLATIN
     Indication: Cutaneous T-cell lymphoma
     Dosage: 60 MILLIGRAM
     Route: 065
     Dates: start: 202109

REACTIONS (2)
  - Myelosuppression [Recovering/Resolving]
  - Pyrexia [Recovering/Resolving]
